FAERS Safety Report 15131559 (Version 2)
Quarter: 2018Q3

REPORT INFORMATION
  Report Type: Spontaneous
  Country: JP (occurrence: JP)
  Receive Date: 20180711
  Receipt Date: 20180813
  Transmission Date: 20181010
  Serious: Yes (Other)
  Sender: FDA-Public Use
  Company Number: JP-BAUSCH-BL-2018-018937

PATIENT
  Age: 80 Year
  Sex: Male

DRUGS (20)
  1. VISUDYNE [Suspect]
     Active Substance: VERTEPORFIN
     Indication: AGE-RELATED MACULAR DEGENERATION
     Route: 042
  2. EYLEA [Suspect]
     Active Substance: AFLIBERCEPT
     Route: 065
  3. EYLEA [Suspect]
     Active Substance: AFLIBERCEPT
     Route: 065
  4. LUCENTIS [Suspect]
     Active Substance: RANIBIZUMAB
     Route: 031
  5. LUCENTIS [Suspect]
     Active Substance: RANIBIZUMAB
     Route: 031
  6. EYLEA [Suspect]
     Active Substance: AFLIBERCEPT
     Route: 065
  7. EYLEA [Suspect]
     Active Substance: AFLIBERCEPT
     Route: 065
  8. EYLEA [Suspect]
     Active Substance: AFLIBERCEPT
     Route: 065
  9. VISUDYNE [Suspect]
     Active Substance: VERTEPORFIN
     Route: 042
  10. LUCENTIS [Suspect]
     Active Substance: RANIBIZUMAB
     Route: 031
  11. LUCENTIS [Suspect]
     Active Substance: RANIBIZUMAB
     Route: 031
  12. EYLEA [Suspect]
     Active Substance: AFLIBERCEPT
     Route: 065
  13. LUCENTIS [Suspect]
     Active Substance: RANIBIZUMAB
     Indication: AGE-RELATED MACULAR DEGENERATION
     Route: 031
  14. LUCENTIS [Suspect]
     Active Substance: RANIBIZUMAB
     Route: 031
  15. LUCENTIS [Suspect]
     Active Substance: RANIBIZUMAB
     Route: 031
  16. EYLEA [Suspect]
     Active Substance: AFLIBERCEPT
     Indication: AGE-RELATED MACULAR DEGENERATION
     Route: 065
  17. EYLEA [Suspect]
     Active Substance: AFLIBERCEPT
     Route: 065
  18. LUCENTIS [Suspect]
     Active Substance: RANIBIZUMAB
     Route: 031
  19. LUCENTIS [Suspect]
     Active Substance: RANIBIZUMAB
     Route: 031
  20. EYLEA [Suspect]
     Active Substance: AFLIBERCEPT
     Route: 065

REACTIONS (2)
  - Drug effect incomplete [Unknown]
  - Age-related macular degeneration [Unknown]
